FAERS Safety Report 7602587-4 (Version None)
Quarter: 2011Q3

REPORT INFORMATION
  Report Type: 
  Country: None (occurrence: None)
  Receive Date: 20110712
  Receipt Date: 20110706
  Transmission Date: 20111222
  Serious: Yes (Death)
  Sender: FDA-Public Use
  Company Number: JP-CELGENEUS-087-50794-11070669

PATIENT

DRUGS (1)
  1. VIDAZA [Suspect]
     Dosage: 75 MICROGRAM/SQ. METER
     Route: 058

REACTIONS (1)
  - MENINGITIS HERPES [None]
